FAERS Safety Report 6167777-9 (Version None)
Quarter: 2009Q2

REPORT INFORMATION
  Report Type: 
  Country: None (occurrence: None)
  Receive Date: 20090427
  Receipt Date: 20090415
  Transmission Date: 20091009
  Serious: Yes (Hospitalization, Other)
  Sender: FDA-Public Use
  Company Number: PHHY2009JP03299

PATIENT
  Sex: Male
  Weight: 45 kg

DRUGS (7)
  1. VOLTAREN [Suspect]
     Indication: ANTIPYRESIS
     Dosage: UNK
     Route: 054
     Dates: start: 20090113, end: 20090115
  2. VOLTAREN [Suspect]
     Indication: PYREXIA
  3. CALONAL [Suspect]
     Indication: PYREXIA
     Dosage: 200 MG/DAY
     Route: 048
     Dates: start: 20090110, end: 20090115
  4. KLARICID [Suspect]
     Indication: PYREXIA
     Dosage: 400 MG/DAY
     Route: 048
     Dates: start: 20090110, end: 20090111
  5. KLARICID [Suspect]
     Indication: UPPER RESPIRATORY TRACT INFLAMMATION
  6. ROCEPHIN [Suspect]
     Indication: BACTERIAL INFECTION
     Dosage: 2 G/DAY
     Route: 042
     Dates: start: 20090114, end: 20090115
  7. CLAFORAN [Suspect]
     Indication: BACTERIAL INFECTION
     Dosage: 2 G/DAY
     Route: 042
     Dates: start: 20090112, end: 20090113

REACTIONS (8)
  - ATRIOVENTRICULAR BLOCK [None]
  - BACTERIAL INFECTION [None]
  - BLOOD PRESSURE DECREASED [None]
  - HEART RATE DECREASED [None]
  - MALAISE [None]
  - PROTEINURIA [None]
  - PYREXIA [None]
  - SICK SINUS SYNDROME [None]
